FAERS Safety Report 12931350 (Version 1)
Quarter: 2016Q4

REPORT INFORMATION
  Report Type: Spontaneous
  Country: US (occurrence: US)
  Receive Date: 20161110
  Receipt Date: 20161110
  Transmission Date: 20170207
  Serious: No
  Sender: FDA-Public Use
  Company Number: US-JAZZ-2016-US-018103

PATIENT
  Sex: Male

DRUGS (15)
  1. XYREM [Suspect]
     Active Substance: SODIUM OXYBATE
     Dosage: DOSE ADJUSTMENTS
     Route: 048
     Dates: start: 200406, end: 200407
  2. TELMISARTAN. [Suspect]
     Active Substance: TELMISARTAN
     Indication: PRODUCT USED FOR UNKNOWN INDICATION
     Dosage: UNK
     Dates: start: 2014
  3. CHLORTHALIDONE. [Concomitant]
     Active Substance: CHLORTHALIDONE
  4. TAMSULOSIN HCL [Concomitant]
     Active Substance: TAMSULOSIN
  5. MILK THISTLE EXTRACT [Concomitant]
  6. TESTOSTERONE CYPIONATE. [Concomitant]
     Active Substance: TESTOSTERONE CYPIONATE
  7. ATIVAN [Concomitant]
     Active Substance: LORAZEPAM
  8. TELMISARTAN. [Concomitant]
     Active Substance: TELMISARTAN
  9. ZOLPIDEM TARTRATE. [Concomitant]
     Active Substance: ZOLPIDEM TARTRATE
  10. XYREM [Suspect]
     Active Substance: SODIUM OXYBATE
     Dosage: 4.5 G, BID
     Route: 048
     Dates: start: 200407
  11. XYREM [Suspect]
     Active Substance: SODIUM OXYBATE
     Indication: NARCOLEPSY
     Dosage: 2.25 G, BID
     Route: 048
     Dates: start: 200405, end: 200406
  12. CLONIDINE HCL [Concomitant]
     Active Substance: CLONIDINE HYDROCHLORIDE
  13. GINGER. [Concomitant]
     Active Substance: GINGER
  14. NEURONTIN [Concomitant]
     Active Substance: GABAPENTIN
  15. HAWTHORNE [Concomitant]

REACTIONS (3)
  - Swelling [Not Recovered/Not Resolved]
  - Hypertension [Recovering/Resolving]
  - Benign prostatic hyperplasia [Unknown]
